FAERS Safety Report 24247267 (Version 1)
Quarter: 2024Q3

REPORT INFORMATION
  Report Type: Spontaneous
  Country: US (occurrence: US)
  Receive Date: 20240826
  Receipt Date: 20240826
  Transmission Date: 20241017
  Serious: No
  Sender: ROCHE
  Company Number: US-ROCHE-10000063600

PATIENT
  Sex: Male

DRUGS (12)
  1. ACTEMRA ACTPEN [Suspect]
     Active Substance: TOCILIZUMAB
     Indication: Rheumatoid arthritis
     Dosage: INJECT 1 PEN (162MG) SUBCUTANEOUSLY EVERY 14 DAYS
     Route: 058
  2. ALBUTEROL SU AER 108 [Concomitant]
  3. CELEBREX CAP 400MG [Concomitant]
     Route: 065
  4. COZAAR TAB 100MG [Concomitant]
     Route: 065
  5. CRESTOR TAB 40MG [Concomitant]
     Route: 065
  6. FUROSEMIDE TAB 80MG [Concomitant]
     Route: 065
  7. PRILOSEC OTC TBE 20MG [Concomitant]
     Route: 065
  8. REXULTI TAB 4MG [Concomitant]
     Route: 065
  9. RYBELSUS TAB 14MG [Concomitant]
     Route: 065
  10. SPIRIVA HAND CAP 18MCG [Concomitant]
     Dosage: 18 MCG.
     Route: 065
  11. TAMSULOSIN H CAP 0.4MG [Concomitant]
     Route: 065
  12. VIIBRYD TAB 40MG [Concomitant]
     Route: 065

REACTIONS (2)
  - Drug ineffective [Unknown]
  - No adverse event [Unknown]
